FAERS Safety Report 5063684-3 (Version None)
Quarter: 2006Q3

REPORT INFORMATION
  Report Type: 
  Country: None (occurrence: None)
  Receive Date: 20060727
  Receipt Date: 20060424
  Transmission Date: 20061208
  Serious: No
  Sender: FDA-Public Use
  Company Number: US-GLAXOSMITHKLINE-A0602994A

PATIENT
  Age: 46 Year
  Sex: Male

DRUGS (6)
  1. LEXIVA [Suspect]
     Indication: HIV INFECTION
     Dosage: 700MG TWICE PER DAY
     Route: 048
     Dates: start: 20060217
  2. NORVIR [Concomitant]
  3. TRUVADA [Concomitant]
  4. VIDEX [Concomitant]
  5. RETROVIR [Concomitant]
  6. PRILOSEC [Concomitant]

REACTIONS (1)
  - ABDOMINAL PAIN UPPER [None]
